FAERS Safety Report 10158670 (Version 1)
Quarter: 2014Q2

REPORT INFORMATION
  Report Type: Spontaneous
  Country: US (occurrence: US)
  Receive Date: 20140508
  Receipt Date: 20140508
  Transmission Date: 20141212
  Serious: Yes (Hospitalization)
  Sender: FDA-Public Use
  Company Number: US-BIOGENIDEC-2014BI040263

PATIENT
  Age: 61 Year
  Sex: Female

DRUGS (2)
  1. TECFIDERA [Suspect]
     Indication: MULTIPLE SCLEROSIS
     Dates: start: 20140125
  2. MORPHINE [Concomitant]
     Indication: DEMYELINATION

REACTIONS (3)
  - Fall [Recovered/Resolved]
  - Vision blurred [Recovered/Resolved]
  - Dyskinesia [Recovered/Resolved]
